FAERS Safety Report 4564204-X (Version None)
Quarter: 2005Q1

REPORT INFORMATION
  Report Type: 
  Country: None (occurrence: None)
  Receive Date: 20050126
  Receipt Date: 20050113
  Transmission Date: 20050727
  Serious: Yes (Life-Threatening, Hospitalization)
  Sender: FDA-Public Use
  Company Number: 210315

PATIENT
  Age: 63 Year
  Sex: Female
  Weight: 63 kg

DRUGS (5)
  1. MABTHERA          (RITUXIMAB) [Suspect]
     Indication: NON-HODGKIN'S LYMPHOMA
     Dosage: 700 MG, INTRAVENOUS
     Route: 042
     Dates: start: 20040730
  2. CYCLOPHOSPHAMIDE [Concomitant]
  3. DOXORUBICIN            (DOXORUBIDIN) [Concomitant]
  4. VINCRISTINE [Concomitant]
  5. PREDNISONE               (PREDNSONE) [Concomitant]

REACTIONS (1)
  - NEUTROPENIC SEPSIS [None]
